FAERS Safety Report 24258334 (Version 1)
Quarter: 2024Q3

REPORT INFORMATION
  Report Type: Spontaneous
  Country: US (occurrence: US)
  Receive Date: 20240828
  Receipt Date: 20240828
  Transmission Date: 20241017
  Serious: No
  Sender: VELOXIS PHARMACEUTICALS
  Company Number: US-VELOXIS PHARMACEUTICALS, INC.-2021-VEL-00727

PATIENT
  Sex: Male

DRUGS (1)
  1. ENVARSUS XR [Suspect]
     Active Substance: TACROLIMUS
     Indication: Heart transplant
     Dosage: TWO 0.75 MG
     Route: 065
     Dates: start: 202101

REACTIONS (2)
  - Asthenia [Unknown]
  - Off label use [Unknown]
